FAERS Safety Report 21519587 (Version 1)
Quarter: 2022Q4

REPORT INFORMATION
  Report Type: Spontaneous
  Country: US (occurrence: US)
  Receive Date: 20221028
  Receipt Date: 20221028
  Transmission Date: 20230112
  Serious: No
  Sender: FDA-Public Use
  Company Number: US-JNJFOC-20221045499

PATIENT
  Age: 52 Year
  Sex: Male

DRUGS (8)
  1. DARUNAVIR [Suspect]
     Active Substance: DARUNAVIR
     Indication: Acquired immunodeficiency syndrome
     Route: 048
  2. RITONAVIR [Suspect]
     Active Substance: RITONAVIR
     Indication: Acquired immunodeficiency syndrome
     Route: 065
  3. EMTRICITABINE\TENOFOVIR DISOPROXIL FUMARATE [Suspect]
     Active Substance: EMTRICITABINE\TENOFOVIR DISOPROXIL FUMARATE
     Indication: Acquired immunodeficiency syndrome
     Route: 065
  4. RIFABUTIN [Suspect]
     Active Substance: RIFABUTIN
     Indication: Acquired immunodeficiency syndrome
     Route: 065
  5. ETHAMBUTOL [Suspect]
     Active Substance: ETHAMBUTOL HYDROCHLORIDE
     Indication: Acquired immunodeficiency syndrome
     Route: 065
  6. MOXIFLOXACIN [Suspect]
     Active Substance: MOXIFLOXACIN
     Indication: Acquired immunodeficiency syndrome
     Route: 065
  7. AZITHROMYCIN [Suspect]
     Active Substance: AZITHROMYCIN
     Indication: Acquired immunodeficiency syndrome
     Route: 065
  8. PREDNISONE [Suspect]
     Active Substance: PREDNISONE
     Indication: Acquired immunodeficiency syndrome
     Route: 065

REACTIONS (1)
  - Nausea [Unknown]
